FAERS Safety Report 8326095-0 (Version None)
Quarter: 2012Q2

REPORT INFORMATION
  Report Type: 
  Country: None (occurrence: None)
  Receive Date: 20120501
  Receipt Date: 20120426
  Transmission Date: 20120825
  Serious: Yes (Death)
  Sender: FDA-Public Use
  Company Number: GR-GLAXOSMITHKLINE-B0799024A

PATIENT
  Age: 78 Year
  Sex: Female

DRUGS (3)
  1. PROMACTA [Suspect]
     Indication: IDIOPATHIC THROMBOCYTOPENIC PURPURA
     Route: 065
     Dates: start: 20101215
  2. CORTICOSTEROIDS [Concomitant]
  3. POLYGAM S/D [Concomitant]

REACTIONS (3)
  - LETHARGY [None]
  - CEREBROVASCULAR ACCIDENT [None]
  - PLATELET COUNT ABNORMAL [None]
